FAERS Safety Report 8997735 (Version 1)
Quarter: 2013Q1

REPORT INFORMATION
  Report Type: Report from Study
  Country: JP (occurrence: JP)
  Receive Date: 20130104
  Receipt Date: 20130104
  Transmission Date: 20140127
  Serious: Yes (Death, Life-Threatening, Other)
  Sender: FDA-Public Use
  Company Number: JP-ROCHE-612447

PATIENT
  Age: 68 None
  Sex: Male
  Weight: 57 kg

DRUGS (20)
  1. TOCILIZUMAB [Suspect]
     Indication: RHEUMATOID ARTHRITIS
     Route: 041
     Dates: start: 20081111, end: 20081111
  2. TOCILIZUMAB [Suspect]
     Route: 041
     Dates: start: 20081209, end: 20081209
  3. TOCILIZUMAB [Suspect]
     Route: 041
     Dates: start: 20090106, end: 20090106
  4. PREDONINE [Concomitant]
     Route: 048
     Dates: start: 200712, end: 20090126
  5. THYRADIN-S [Concomitant]
     Route: 048
  6. LUDIOMIL [Concomitant]
     Route: 048
  7. LUVOX [Concomitant]
     Route: 048
  8. MYSLEE [Concomitant]
     Route: 048
  9. PANALDINE [Concomitant]
     Dosage: FORM: ORAL FORMULATION (NOT OTHERWISE SPECIFIED)
     Route: 048
  10. ITOROL [Concomitant]
     Route: 048
  11. AMARYL [Concomitant]
     Route: 048
  12. GLUCOBAY [Concomitant]
     Route: 048
  13. NEUROTROPIN [Concomitant]
     Dosage: DOSAGE: 12 UT DAILY.
     Route: 048
  14. LOXONIN [Concomitant]
     Dosage: FORM: ORAL FORMULATION (NOT OTHERWISE SPECIFIED)
     Route: 048
  15. MUCOSTA [Concomitant]
     Dosage: FORM: ORAL FORMULATION (NOT OTHERWISE SPECIFIED)
     Route: 048
  16. TAKEPRON [Concomitant]
     Route: 048
  17. METHYCOBAL [Concomitant]
     Dosage: FORM:ORAL FORMULATION (NOT OTHERWISE SPECIFIED)
     Route: 048
  18. PURSENNID [Concomitant]
     Route: 048
  19. CATLEP [Concomitant]
     Dosage: FORM: TAPE. NOTE: TAKEN AS NEEDED.
     Route: 061
  20. VOLTAREN [Concomitant]
     Dosage: FORM: RECTAL SUPPOSITORY, TAKEN AS NEEDED.
     Route: 054

REACTIONS (3)
  - Acute myocardial infarction [Fatal]
  - Hyperthermia [Not Recovered/Not Resolved]
  - Sepsis [Unknown]
